FAERS Safety Report 24828564 (Version 4)
Quarter: 2025Q2

REPORT INFORMATION
  Report Type: Spontaneous
  Country: GB (occurrence: GB)
  Receive Date: 20250110
  Receipt Date: 20250429
  Transmission Date: 20250717
  Serious: Yes (Other)
  Sender: ROCHE
  Company Number: GB-002147023-NVSC2025GB000881

PATIENT
  Sex: Female

DRUGS (1)
  1. XOLAIR [Suspect]
     Active Substance: OMALIZUMAB
     Indication: Product used for unknown indication
     Dosage: 300 MG, 28D
     Route: 050

REACTIONS (6)
  - Dermatitis [Unknown]
  - Haemorrhage [Unknown]
  - Injection site atrophy [Unknown]
  - Gait disturbance [Unknown]
  - Swelling [Unknown]
  - Wrong technique in product usage process [Unknown]
